FAERS Safety Report 12505316 (Version 3)
Quarter: 2016Q3

REPORT INFORMATION
  Report Type: Spontaneous
  Country: GB (occurrence: GB)
  Receive Date: 20160628
  Receipt Date: 20160718
  Transmission Date: 20161109
  Serious: Yes (Life-Threatening, Other)
  Sender: FDA-Public Use
  Company Number: PHHY2016GB087388

PATIENT
  Age: 40 Year
  Sex: Female
  Weight: 57 kg

DRUGS (17)
  1. GONAL-F [Concomitant]
     Active Substance: FOLLITROPIN
     Indication: PRODUCT USED FOR UNKNOWN INDICATION
     Route: 065
  2. VOLTAROL [Suspect]
     Active Substance: DICLOFENAC SODIUM
     Indication: PREOPERATIVE CARE
     Dosage: 1 DF, UNK, LOT: H0029
     Route: 054
     Dates: start: 20160608, end: 20160608
  3. FOLIC ACID. [Concomitant]
     Active Substance: FOLIC ACID
     Indication: PRODUCT USED FOR UNKNOWN INDICATION
     Route: 065
  4. FOLIC ACID. [Concomitant]
     Active Substance: FOLIC ACID
     Route: 065
  5. SUPRECUR [Concomitant]
     Active Substance: BUSERELIN
     Indication: PRODUCT USED FOR UNKNOWN INDICATION
     Route: 065
  6. ONDANSETRON [Suspect]
     Active Substance: ONDANSETRON
     Indication: PROPHYLAXIS OF NAUSEA AND VOMITING
     Dosage: 4 MG, UNK, LOT: D11126
     Route: 042
     Dates: start: 20160608, end: 20160608
  7. FOLIC ACID. [Concomitant]
     Active Substance: FOLIC ACID
     Route: 065
  8. CEFOTAXIME [Suspect]
     Active Substance: CEFOTAXIME SODIUM
     Indication: INFECTION PROPHYLAXIS
     Dosage: 1 G, UNK, LOT: 18M3223
     Route: 042
     Dates: start: 20160608, end: 20160608
  9. PREDNISOLONE. [Concomitant]
     Active Substance: PREDNISOLONE
     Route: 065
  10. PROPOFOL. [Suspect]
     Active Substance: PROPOFOL
     Indication: GENERAL ANAESTHESIA
     Dosage: 200 MG, UNK, LOT: A051038
     Route: 042
     Dates: start: 20160608, end: 20160608
  11. ALFENTANIL. [Suspect]
     Active Substance: ALFENTANIL
     Indication: GENERAL ANAESTHESIA
     Dosage: 125 UG, UNK
     Route: 042
     Dates: start: 20160608, end: 20160608
  12. ZOMACTON [Concomitant]
     Active Substance: SOMATROPIN
     Indication: PRODUCT USED FOR UNKNOWN INDICATION
     Route: 065
  13. ASPIRIN//ACETYLSALICYLIC ACID [Concomitant]
     Active Substance: ASPIRIN
     Indication: PRODUCT USED FOR UNKNOWN INDICATION
     Route: 065
  14. PREDNISOLONE. [Concomitant]
     Active Substance: PREDNISOLONE
     Route: 065
  15. FLAGYL [Suspect]
     Active Substance: METRONIDAZOLE\METRONIDAZOLE HYDROCHLORIDE
     Indication: INFECTION PROPHYLAXIS
     Dosage: 1 G, UNK. LOT: 80
     Route: 054
     Dates: start: 20160608, end: 20160608
  16. PREDNISOLONE. [Concomitant]
     Active Substance: PREDNISOLONE
     Indication: PRODUCT USED FOR UNKNOWN INDICATION
     Route: 065
  17. OVITRELLE [Concomitant]
     Active Substance: CHORIOGONADOTROPIN ALFA
     Indication: PRODUCT USED FOR UNKNOWN INDICATION
     Dosage: UNK
     Route: 065
     Dates: start: 20160606, end: 20160606

REACTIONS (1)
  - Anaphylactic reaction [Recovering/Resolving]

NARRATIVE: CASE EVENT DATE: 20160608
